FAERS Safety Report 26083410 (Version 1)
Quarter: 2025Q4

REPORT INFORMATION
  Report Type: Spontaneous
  Country: US (occurrence: None)
  Receive Date: 20251124
  Receipt Date: 20251124
  Transmission Date: 20260118
  Serious: Yes (Hospitalization)
  Sender: FDA-CTU
  Company Number: None

PATIENT
  Age: 78 Year
  Sex: Female

DRUGS (2)
  1. CUVITRU [Suspect]
     Active Substance: HUMAN IMMUNOGLOBULIN G
     Indication: Immunodeficiency common variable
     Dosage: OTHER STRENGTH : 2GM/10ML;?OTHER FREQUENCY : EVERY WEEK;?
     Route: 058
     Dates: start: 20230508
  2. CUVITRU [Suspect]
     Active Substance: HUMAN IMMUNOGLOBULIN G
     Indication: Immunodeficiency common variable
     Dosage: OTHER STRENGTH : 4GM/20ML;?OTHER FREQUENCY : EVERY WEEK;?
     Route: 058
     Dates: start: 20230508

REACTIONS (1)
  - Fall [None]

NARRATIVE: CASE EVENT DATE: 20251118
